FAERS Safety Report 16027079 (Version 1)
Quarter: 2019Q1

REPORT INFORMATION
  Report Type: Spontaneous
  Country: US (occurrence: US)
  Receive Date: 20190303
  Receipt Date: 20190303
  Transmission Date: 20190418
  Serious: No
  Sender: FDA-Public Use
  Company Number: US-IMPAX LABORATORIES, LLC-2018-IPXL-00616

PATIENT
  Sex: Female
  Weight: 84 kg

DRUGS (3)
  1. RYTARY [Suspect]
     Active Substance: CARBIDOPA\LEVODOPA
     Dosage: UNK, 2 CAPS FOLLOWED BY ANOTHER, THEN 2 CAPS AND FINALLY 1 CAPS
     Route: 065
  2. RYTARY [Suspect]
     Active Substance: CARBIDOPA\LEVODOPA
     Indication: PARKINSON^S DISEASE
     Dosage: 23.75/95 MG, TAKE 2 CAPSULES IN THE MORNING AND 1 CAPSULE TID
     Route: 065
     Dates: start: 20180128
  3. SINEMET [Concomitant]
     Active Substance: CARBIDOPA\LEVODOPA
     Indication: PARKINSON^S DISEASE
     Dosage: HALF TABLET, UNK
     Route: 065

REACTIONS (3)
  - Malaise [Not Recovered/Not Resolved]
  - Treatment noncompliance [Unknown]
  - Tremor [Not Recovered/Not Resolved]

NARRATIVE: CASE EVENT DATE: 2018
